FAERS Safety Report 8679678 (Version 2)
Quarter: 2012Q4

REPORT INFORMATION
  Report Type: Spontaneous
  Country: US (occurrence: None)
  Receive Date: 20120706
  Receipt Date: 20120912
  Transmission Date: 20130627
  Serious: Yes (Hospitalization)
  Sender: FDA-Public Use
  Company Number: TPA2012A04040

PATIENT
  Age: 58 Year
  Sex: Female
  Weight: 127.01 kg

DRUGS (4)
  1. EDARBYCLOR [Suspect]
     Indication: HYPERTENSION
     Route: 048
     Dates: start: 20120530, end: 20120605
  2. EDARBYCLOR [Suspect]
     Indication: HYPERTENSION
     Route: 048
     Dates: start: 20120606, end: 20120610
  3. EDARBI [Suspect]
     Indication: HYPERTENSION
     Route: 048
     Dates: start: 201206, end: 201206
  4. HYDROCHLOROTHIAZIDE [Concomitant]

REACTIONS (6)
  - DIZZINESS [None]
  - SOMNOLENCE [None]
  - DRUG INEFFECTIVE [None]
  - HEART RATE INCREASED [None]
  - PALPITATIONS [None]
  - HYPERACUSIS [None]
